FAERS Safety Report 8384677-4 (Version None)
Quarter: 2012Q2

REPORT INFORMATION
  Report Type: 
  Country: None (occurrence: None)
  Receive Date: 20120524
  Receipt Date: 20120514
  Transmission Date: 20120825
  Serious: Yes (Life-Threatening, Hospitalization, Other)
  Sender: FDA-Public Use
  Company Number: US-ELI_LILLY_AND_COMPANY-US201204006135

PATIENT
  Sex: Female

DRUGS (4)
  1. MULTI-VITAMIN [Concomitant]
  2. FORTEO [Suspect]
     Dosage: 20 UG, QD
     Route: 058
  3. CALCIUM [Concomitant]
  4. VITAMIN D [Concomitant]

REACTIONS (3)
  - MECHANICAL VENTILATION [None]
  - SPINAL FRACTURE [None]
  - ROAD TRAFFIC ACCIDENT [None]
